FAERS Safety Report 9291485 (Version 1)
Quarter: 2013Q2

REPORT INFORMATION
  Report Type: Spontaneous
  Country: US (occurrence: US)
  Receive Date: 20130515
  Receipt Date: 20130515
  Transmission Date: 20140414
  Serious: No
  Sender: FDA-Public Use
  Company Number: US-009507513-1305USA003609

PATIENT
  Age: 31 Year
  Sex: Female
  Weight: 73.92 kg

DRUGS (1)
  1. IMPLANON [Suspect]
     Indication: CONTRACEPTION
     Dosage: UNK
     Route: 065
     Dates: start: 20130322

REACTIONS (4)
  - Breast tenderness [Unknown]
  - Abdominal pain upper [Unknown]
  - Implant site pain [Unknown]
  - Metrorrhagia [Unknown]
